FAERS Safety Report 24358833 (Version 1)
Quarter: 2024Q3

REPORT INFORMATION
  Report Type: Spontaneous
  Country: FR (occurrence: FR)
  Receive Date: 20240924
  Receipt Date: 20240924
  Transmission Date: 20241017
  Serious: Yes (Hospitalization)
  Sender: TEVA
  Company Number: None

PATIENT
  Age: 2 Year
  Sex: Female

DRUGS (2)
  1. DOXORUBICIN [Suspect]
     Active Substance: DOXORUBICIN
     Indication: Non-Hodgkin^s lymphoma
     Dosage: TIME INTERVAL: TOTAL: DOXORUBICIN HYDROCHLORIDE
     Route: 042
     Dates: start: 20240903, end: 20240903
  2. VINCRISTINE SULFATE [Concomitant]
     Active Substance: VINCRISTINE SULFATE
     Indication: Product used for unknown indication
     Route: 065

REACTIONS (2)
  - Injection site extravasation [Recovering/Resolving]
  - Injection site oedema [Recovering/Resolving]

NARRATIVE: CASE EVENT DATE: 20240903
